FAERS Safety Report 10418267 (Version 1)
Quarter: 2014Q3

REPORT INFORMATION
  Report Type: Spontaneous
  Country: US (occurrence: None)
  Receive Date: 20140828
  Receipt Date: 20140828
  Transmission Date: 20150326
  Serious: Yes (Hospitalization)
  Sender: FDA-Public Use
  Company Number: None

PATIENT
  Age: 20 Year
  Sex: Male
  Weight: 86 kg

DRUGS (3)
  1. 5-FLUOROURACIL (5-FU) [Suspect]
     Active Substance: FLUOROURACIL
  2. LEUCOVORIN CALCIUM. [Suspect]
     Active Substance: LEUCOVORIN CALCIUM
  3. ELOXATIN [Suspect]
     Active Substance: OXALIPLATIN

REACTIONS (5)
  - Herpes zoster meningitis [None]
  - Paraesthesia [None]
  - Vision blurred [None]
  - Ophthalmic herpes zoster [None]
  - Rash vesicular [None]

NARRATIVE: CASE EVENT DATE: 20140817
